FAERS Safety Report 9684186 (Version 1)
Quarter: 2013Q4

REPORT INFORMATION
  Report Type: Spontaneous
  Country: US (occurrence: None)
  Receive Date: 20131111
  Receipt Date: 20131111
  Transmission Date: 20140711
  Serious: No
  Sender: FDA-Public Use
  Company Number: None

PATIENT
  Age: 76 Year
  Sex: Female
  Weight: 63.5 kg

DRUGS (1)
  1. AMLODIPINE BESYALATE [Suspect]
     Indication: BLOOD PRESSURE INCREASED
     Dosage: 1 TABLET, TWICE DAILY, TAKEN BY MOUTH
     Route: 048

REACTIONS (3)
  - Lip swelling [None]
  - Rash pruritic [None]
  - Burning sensation [None]
